FAERS Safety Report 25725047 (Version 2)
Quarter: 2025Q3

REPORT INFORMATION
  Report Type: Spontaneous
  Country: CO (occurrence: CO)
  Receive Date: 20250826
  Receipt Date: 20250915
  Transmission Date: 20251021
  Serious: Yes (Other)
  Sender: ALKEM
  Company Number: None

PATIENT
  Age: 29 Year
  Sex: Male

DRUGS (3)
  1. MYCOPHENOLATE MOFETIL [Suspect]
     Active Substance: MYCOPHENOLATE MOFETIL
     Indication: Immunosuppressant drug therapy
     Route: 065
  2. TACROLIMUS [Suspect]
     Active Substance: TACROLIMUS
     Indication: Immunosuppressant drug therapy
     Route: 065
  3. PREDNISONE [Suspect]
     Active Substance: PREDNISONE
     Indication: Immunosuppressant drug therapy
     Route: 065

REACTIONS (2)
  - Renal impairment [Unknown]
  - Visceral leishmaniasis [Recovered/Resolved]
